FAERS Safety Report 9285682 (Version 5)
Quarter: 2013Q2

REPORT INFORMATION
  Report Type: Spontaneous
  Country: GB (occurrence: GB)
  Receive Date: 20130513
  Receipt Date: 20130531
  Transmission Date: 20140414
  Serious: Yes (Other)
  Sender: FDA-Public Use
  Company Number: GB-PFIZER INC-2013144692

PATIENT
  Age: 47 Year
  Sex: Male

DRUGS (2)
  1. CISPLATIN [Suspect]
     Indication: LUNG ADENOCARCINOMA
     Dosage: UNK
     Dates: end: 201104
  2. PEMETREXED [Suspect]
     Indication: LUNG ADENOCARCINOMA
     Dosage: UNK
     Dates: end: 201104

REACTIONS (12)
  - Pulmonary embolism [Unknown]
  - Lower respiratory tract infection [Unknown]
  - Anxiety [Unknown]
  - Weight increased [Unknown]
  - Disease progression [Unknown]
  - Lung adenocarcinoma [Unknown]
  - Pleural effusion [Unknown]
  - Dyspnoea [Unknown]
  - Fatigue [Unknown]
  - Diarrhoea [Unknown]
  - Malaise [Unknown]
  - Decreased appetite [Unknown]
